FAERS Safety Report 4470519-6 (Version None)
Quarter: 2004Q4

REPORT INFORMATION
  Report Type: 
  Country: None (occurrence: None)
  Receive Date: 20041005
  Receipt Date: 20041005
  Transmission Date: 20050328
  Serious: Yes (Hospitalization)
  Sender: FDA-Public Use
  Company Number: None

PATIENT
  Sex: Male
  Weight: 92.6 kg

DRUGS (7)
  1. CISPLATIN [Suspect]
     Indication: SQUAMOUS CELL CARCINOMA
     Dosage: 235 MG DAY 1 IV
     Route: 042
     Dates: start: 20040923, end: 20040923
  2. NPH INSULIN [Concomitant]
  3. REGULAR ILETIN II [Concomitant]
  4. GATIFLOXACIN [Concomitant]
  5. VICODIN [Concomitant]
  6. ZOFRAN [Concomitant]
  7. COMPAZINE [Concomitant]

REACTIONS (3)
  - NAUSEA [None]
  - NEPHROPATHY TOXIC [None]
  - VOMITING [None]
